FAERS Safety Report 8911040 (Version 3)
Quarter: 2013Q2

REPORT INFORMATION
  Report Type: Spontaneous
  Country: US (occurrence: US)
  Receive Date: 20121115
  Receipt Date: 20130528
  Transmission Date: 20140414
  Serious: Yes (Hospitalization)
  Sender: FDA-Public Use
  Company Number: US-009507513-1211USA003819

PATIENT
  Age: 56 Year
  Sex: Male
  Weight: 90.7 kg

DRUGS (4)
  1. PEGINTRON [Suspect]
     Indication: HEPATITIS C
     Dosage: UNK UNK, QW
     Route: 058
     Dates: start: 20120314
  2. RIBAVIRIN [Suspect]
     Route: 048
  3. TELAPREVIR [Suspect]
  4. CITALOPRAM [Concomitant]

REACTIONS (8)
  - Atrial fibrillation [Recovered/Resolved]
  - Underdose [Unknown]
  - Malaise [Unknown]
  - Malaise [Unknown]
  - Malaise [Unknown]
  - Malaise [Unknown]
  - Malaise [Unknown]
  - Product quality issue [Unknown]
